FAERS Safety Report 5834840-9 (Version None)
Quarter: 2008Q3

REPORT INFORMATION
  Report Type: 
  Country: None (occurrence: None)
  Receive Date: 20080801
  Receipt Date: 20080716
  Transmission Date: 20090109
  Serious: Yes (Hospitalization)
  Sender: FDA-Public Use
  Company Number: 200807IM000219

PATIENT
  Age: 60 Year
  Sex: Female

DRUGS (7)
  1. INTERFERON GAMMA-1B [Suspect]
     Indication: RETROPERITONEAL CANCER
     Dosage: 0.1 MG, ADMINISTERED COURSE 4, SUBCUTANEOUS
     Route: 058
     Dates: start: 20060223, end: 20060225
  2. GRANULOCYTE MACROPHAGE COLONY STIMULATING FACTOR [Suspect]
     Indication: RETROPERITONEAL CANCER
     Dosage: 600 UG, ADMINISTERED COURSE 4, SUBCUTANEOUS
     Route: 058
     Dates: start: 20060219, end: 20060225
  3. CARBOPLATIN [Suspect]
     Indication: RETROPERITONEAL CANCER
     Dosage: 630 MG, ADMINISTERED COURSE 4, INTRAVENOUS
     Route: 042
     Dates: start: 20060130
  4. VICODIN [Concomitant]
  5. IBUPROFEN [Concomitant]
  6. ZOFRAN [Concomitant]
  7. SENOKOT [Concomitant]

REACTIONS (3)
  - DISEASE PROGRESSION [None]
  - NAUSEA [None]
  - VOMITING [None]
